FAERS Safety Report 11215104 (Version 4)
Quarter: 2016Q1

REPORT INFORMATION
  Report Type: Spontaneous
  Country: AU (occurrence: AU)
  Receive Date: 20150624
  Receipt Date: 20160311
  Transmission Date: 20160525
  Serious: Yes (Hospitalization, Other)
  Sender: FDA-Public Use
  Company Number: AU-SUN PHARMACEUTICAL INDUSTRIES LTD-2015RR-99358

PATIENT

DRUGS (2)
  1. KEPPRA [Suspect]
     Active Substance: LEVETIRACETAM
     Indication: PRODUCT USED FOR UNKNOWN INDICATION
     Dosage: 60-80 G
     Route: 048
  2. PARACETAMOL/CODEINE [Suspect]
     Active Substance: ACETAMINOPHEN\CODEINE PHOSPHATE
     Indication: PRODUCT USED FOR UNKNOWN INDICATION
     Dosage: 10 G/ 600 MG
     Route: 065

REACTIONS (4)
  - Oliguria [Recovered/Resolved]
  - Depressed level of consciousness [Recovered/Resolved]
  - Cardiotoxicity [Recovered/Resolved]
  - Overdose [Recovered/Resolved]
